FAERS Safety Report 15213897 (Version 1)
Quarter: 2018Q3

REPORT INFORMATION
  Report Type: Spontaneous
  Country: US (occurrence: US)
  Receive Date: 20180730
  Receipt Date: 20180730
  Transmission Date: 20181010
  Serious: No
  Sender: FDA-Public Use
  Company Number: US-SA-2018SA204132

PATIENT
  Sex: Male

DRUGS (2)
  1. TOUJEO [Suspect]
     Active Substance: INSULIN GLARGINE
     Dosage: 40 U
  2. TOUJEO [Suspect]
     Active Substance: INSULIN GLARGINE
     Dosage: 52 U, QD
     Dates: start: 2018

REACTIONS (3)
  - Malaise [Unknown]
  - Product storage error [Unknown]
  - Glycosylated haemoglobin increased [Unknown]
